FAERS Safety Report 25531798 (Version 1)
Quarter: 2025Q3

REPORT INFORMATION
  Report Type: Spontaneous
  Country: EU (occurrence: EU)
  Receive Date: 20250709
  Receipt Date: 20250709
  Transmission Date: 20251020
  Serious: Yes (Hospitalization)
  Sender: NOVARTIS
  Company Number: None

PATIENT
  Age: 59 Year
  Sex: Female
  Weight: 58 kg

DRUGS (1)
  1. GILENYA [Suspect]
     Active Substance: FINGOLIMOD HYDROCHLORIDE
     Indication: Multiple sclerosis
     Dosage: 0.5 MG, QD (1 CPS AL GIORNO)
     Route: 048
     Dates: start: 20171001, end: 20250616

REACTIONS (1)
  - Bacterial sepsis [Recovered/Resolved with Sequelae]

NARRATIVE: CASE EVENT DATE: 20250616
